FAERS Safety Report 10444937 (Version 2)
Quarter: 2014Q3

REPORT INFORMATION
  Report Type: Spontaneous
  Country: JP (occurrence: JP)
  Receive Date: 20140910
  Receipt Date: 20140929
  Transmission Date: 20150326
  Serious: Yes (Death, Hospitalization, Other)
  Sender: FDA-Public Use
  Company Number: PHHY2014JP115896

PATIENT
  Sex: Female

DRUGS (6)
  1. HERBESSER [Concomitant]
     Active Substance: DILTIAZEM HYDROCHLORIDE
     Dosage: UNK UKN, UNK
  2. TAMSULOSIN//TAMSULOSIN HYDROCHLORIDE [Concomitant]
     Dosage: UNK UKN, UNK
  3. URSO [Concomitant]
     Active Substance: URSODIOL
     Dosage: UNK UKN, UNK
  4. LANSOPRAZOLE. [Concomitant]
     Active Substance: LANSOPRAZOLE
     Dosage: UNK UKN, UNK
  5. PREDNISOLONE. [Concomitant]
     Active Substance: PREDNISOLONE
     Dosage: 10 MG, UNK
  6. EXJADE [Suspect]
     Active Substance: DEFERASIROX
     Indication: MYELODYSPLASTIC SYNDROME
     Dosage: 250 MG, DAILY
     Route: 048
     Dates: start: 201406

REACTIONS (4)
  - Pneumonia [Fatal]
  - Ileus paralytic [Unknown]
  - Respiratory failure [Fatal]
  - Movement disorder [Unknown]

NARRATIVE: CASE EVENT DATE: 201408
